FAERS Safety Report 12416767 (Version 1)
Quarter: 2016Q2

REPORT INFORMATION
  Report Type: Spontaneous
  Country: US (occurrence: US)
  Receive Date: 20160530
  Receipt Date: 20160530
  Transmission Date: 20160815
  Serious: No
  Sender: FDA-Public Use
  Company Number: US-WEST-WARD PHARMACEUTICALS CORP.-US-H14001-15-01729

PATIENT
  Sex: Male
  Weight: 81.72 kg

DRUGS (1)
  1. TESTOSTERONE. [Suspect]
     Active Substance: TESTOSTERONE
     Indication: BLOOD TESTOSTERONE DECREASED
     Route: 030
     Dates: end: 201509

REACTIONS (4)
  - Ear discomfort [Recovered/Resolved]
  - Loss of libido [Recovered/Resolved]
  - Drug ineffective [Recovered/Resolved]
  - Ear congestion [Recovered/Resolved]
